FAERS Safety Report 8608635-7 (Version None)
Quarter: 2012Q3

REPORT INFORMATION
  Report Type: 
  Country: None (occurrence: None)
  Receive Date: 20120821
  Receipt Date: 20120815
  Transmission Date: 20120928
  Serious: No
  Sender: FDA-Public Use
  Company Number: US-PFIZER INC-2012200042

PATIENT
  Age: 8 Year
  Sex: Male
  Weight: 33 kg

DRUGS (6)
  1. POTASSIUM CITRATE [Concomitant]
     Indication: SUPPLEMENTATION THERAPY
     Dosage: UNK
  2. GENOTROPIN [Suspect]
     Indication: FAILURE TO THRIVE
     Dosage: EITHER 0.4 OR 0.6 MG, DAILY
     Dates: start: 20100101, end: 20100101
  3. CALCIUM [Concomitant]
     Indication: SUPPLEMENTATION THERAPY
     Dosage: UNK
  4. SELENIUM [Concomitant]
     Indication: SUPPLEMENTATION THERAPY
     Dosage: UNK
  5. MIRALAX [Concomitant]
     Dosage: UNK
  6. MULTI-VITAMINS [Concomitant]
     Indication: SUPPLEMENTATION THERAPY
     Dosage: UNK

REACTIONS (3)
  - PAIN IN EXTREMITY [None]
  - HYPERSENSITIVITY [None]
  - INJECTION SITE HAEMATOMA [None]
